FAERS Safety Report 9686466 (Version 2)
Quarter: 2013Q4

REPORT INFORMATION
  Report Type: Spontaneous
  Country: JP (occurrence: JP)
  Receive Date: 20131113
  Receipt Date: 20131122
  Transmission Date: 20140711
  Serious: No
  Sender: FDA-Public Use
  Company Number: JP-BAXTER-2013BAX044046

PATIENT
  Sex: Male
  Weight: 50 kg

DRUGS (3)
  1. DIANEAL-N PD-4 2.5 PD SOLUTION [Suspect]
     Indication: RENAL FAILURE CHRONIC
     Route: 033
     Dates: start: 20120225
  2. DIANEAL-N PD-4 2.5 PD SOLUTION [Suspect]
     Route: 033
     Dates: start: 20120225
  3. EXTRANEAL PD SOLUTION [Suspect]
     Indication: RENAL FAILURE CHRONIC
     Route: 033
     Dates: start: 20120225

REACTIONS (1)
  - Melaena [Recovered/Resolved]
